FAERS Safety Report 16017932 (Version 1)
Quarter: 2019Q1

REPORT INFORMATION
  Report Type: Spontaneous
  Country: US (occurrence: US)
  Receive Date: 20190228
  Receipt Date: 20190228
  Transmission Date: 20190418
  Serious: Yes (Hospitalization)
  Sender: FDA-Public Use
  Company Number: US-PARI RESPIRATORY EQUIPMENT, INC.-2019PAR00014

PATIENT
  Age: 29 Year
  Sex: Female
  Weight: 29.03 kg

DRUGS (23)
  1. ACETAMINOPHEN. [Concomitant]
     Active Substance: ACETAMINOPHEN
  2. NORMAL SALINE [Concomitant]
     Active Substance: SODIUM CHLORIDE
  3. PULMOZYME [Concomitant]
     Active Substance: DORNASE ALFA
  4. PATANASE [Concomitant]
     Active Substance: OLOPATADINE HYDROCHLORIDE
  5. KITABIS PAK [Suspect]
     Active Substance: TOBRAMYCIN
     Indication: LUNG DISORDER
     Dosage: 300 MG, 2X/DAY FOR 28 DAYS ON, THE 28 DAYS OFF
     Dates: start: 2016
  6. EPINEPHRINE AUTO-INJECTOR [Concomitant]
     Active Substance: EPINEPHRINE
  7. SODIUM CHLORIDE. [Concomitant]
     Active Substance: SODIUM CHLORIDE
  8. INFED [Concomitant]
     Active Substance: IRON DEXTRAN
  9. XOPENEX [Concomitant]
     Active Substance: LEVALBUTEROL HYDROCHLORIDE
  10. SCOPOLAMINE [Concomitant]
     Active Substance: SCOPOLAMINE
  11. REGLAN [Concomitant]
     Active Substance: METOCLOPRAMIDE HYDROCHLORIDE
  12. PULMICORT TURBUHALER [Concomitant]
     Active Substance: BUDESONIDE
  13. CAYSTON [Concomitant]
     Active Substance: AZTREONAM
  14. OSMOLITE 1.2 CAL [Concomitant]
  15. OXYGEN. [Concomitant]
     Active Substance: OXYGEN
  16. DIPHENHYDRAMINE. [Concomitant]
     Active Substance: DIPHENHYDRAMINE
  17. TOBRAMYCIN. [Concomitant]
     Active Substance: TOBRAMYCIN
  18. DILAUDID [Concomitant]
     Active Substance: HYDROMORPHONE HYDROCHLORIDE
  19. KEPPRA [Concomitant]
     Active Substance: LEVETIRACETAM
  20. HEPARIN [Concomitant]
     Active Substance: HEPARIN SODIUM
  21. GAMUNEX [Concomitant]
     Active Substance: HUMAN IMMUNOGLOBULIN G
  22. COUMADIN [Concomitant]
     Active Substance: WARFARIN SODIUM
  23. TOPAMAX [Concomitant]
     Active Substance: TOPIRAMATE

REACTIONS (3)
  - Pneumonia aspiration [Recovered/Resolved]
  - Heart rate increased [Unknown]
  - Hypertension [Unknown]

NARRATIVE: CASE EVENT DATE: 20190129
